FAERS Safety Report 18062272 (Version 1)
Quarter: 2020Q3

REPORT INFORMATION
  Report Type: Report from Study
  Country: US (occurrence: US)
  Receive Date: 20200723
  Receipt Date: 20200723
  Transmission Date: 20201103
  Serious: Yes (Death, Life-Threatening, Hospitalization)
  Sender: FDA-Public Use
  Company Number: US-EISAI MEDICAL RESEARCH-EC-2020-073972

PATIENT
  Age: 48 Year
  Sex: Male
  Weight: 51.2 kg

DRUGS (1)
  1. LENVIMA [Suspect]
     Active Substance: LENVATINIB
     Indication: RENAL CELL CARCINOMA
     Route: 048
     Dates: start: 20200310, end: 20200524

REACTIONS (4)
  - Arthralgia [Unknown]
  - Cholangitis [Fatal]
  - Pain in extremity [Unknown]
  - COVID-19 [Fatal]

NARRATIVE: CASE EVENT DATE: 202004
